FAERS Safety Report 9894048 (Version 2)
Quarter: 2014Q1

REPORT INFORMATION
  Report Type: Spontaneous
  Country: US (occurrence: US)
  Receive Date: 20140213
  Receipt Date: 20140310
  Transmission Date: 20141002
  Serious: Yes (Other)
  Sender: FDA-Public Use
  Company Number: US-PFIZER INC-2014039821

PATIENT
  Age: 59 Year
  Sex: Female
  Weight: 56.7 kg

DRUGS (8)
  1. LYRICA [Suspect]
     Indication: FIBROMYALGIA
     Dosage: 75 MG, DAILY (QHS)
     Dates: end: 20140209
  2. METOPROLOL SUCCINATE [Concomitant]
     Indication: HYPERTENSION
     Dosage: 50 MG, DAILY
  3. AMITIZA [Concomitant]
     Dosage: 24 MG, DAILY
  4. SAVELLA [Concomitant]
     Dosage: 50 DAILY
  5. TOPROL XL [Concomitant]
     Dosage: 1 DF, DAILY (100)
  6. ACYCLOVIR [Concomitant]
     Dosage: 400 DAILY
  7. AMBIEN [Concomitant]
     Dosage: 10 DAILY (QHS)
  8. ESTRADIOL [Concomitant]
     Dosage: 1 DF, DAILY (QHS)

REACTIONS (9)
  - Sjogren^s syndrome [Unknown]
  - Dacryostenosis acquired [Unknown]
  - Drug withdrawal syndrome [Not Recovered/Not Resolved]
  - Pain [Not Recovered/Not Resolved]
  - Emotional disorder [Not Recovered/Not Resolved]
  - Heart rate increased [Not Recovered/Not Resolved]
  - Anxiety [Not Recovered/Not Resolved]
  - Fatigue [Unknown]
  - Irritable bowel syndrome [Unknown]
